FAERS Safety Report 7630081-3 (Version None)
Quarter: 2011Q3

REPORT INFORMATION
  Report Type: 
  Country: None (occurrence: None)
  Receive Date: 20110722
  Receipt Date: 20110712
  Transmission Date: 20111222
  Serious: Yes (Death, Congenital Anomaly)
  Sender: FDA-Public Use
  Company Number: FR-UCBSA-036932

PATIENT
  Sex: Female

DRUGS (6)
  1. URBANYL [Suspect]
     Route: 064
     Dates: end: 20090201
  2. KEPPRA [Suspect]
     Route: 064
     Dates: start: 20090301, end: 20090331
  3. URBANYL [Suspect]
     Route: 064
     Dates: start: 20090301, end: 20090331
  4. DEPAKENE [Suspect]
     Route: 064
     Dates: end: 20090331
  5. KEPPRA [Suspect]
     Route: 064
     Dates: end: 20090301
  6. URBANYL [Suspect]
     Dosage: 5 MG IN THE MORNING AND 10 MG IN THE EVENING
     Route: 064
     Dates: start: 20090201, end: 20090301

REACTIONS (4)
  - FOETAL GROWTH RESTRICTION [None]
  - MATERNAL EXPOSURE DURING PREGNANCY [None]
  - PREMATURE BABY [None]
  - CONGENITAL TERATOMA [None]
